FAERS Safety Report 4957449-8 (Version None)
Quarter: 2006Q1

REPORT INFORMATION
  Report Type: 
  Country: None (occurrence: None)
  Receive Date: 20060327
  Receipt Date: 20060315
  Transmission Date: 20060701
  Serious: No
  Sender: FDA-Public Use
  Company Number: 06H-161-0306603-00

PATIENT
  Sex: Female

DRUGS (11)
  1. MAGNESIUM SULFATE [Suspect]
     Dosage: SEE IMAGE
  2. MAGNESIUM SULFATE [Suspect]
     Dosage: SEE IMAGE
  3. SODIUM CHLORIDE [Concomitant]
  4. OXYGEN (OXYGEN) [Concomitant]
  5. PROPOFOL [Concomitant]
  6. FENTANYL [Concomitant]
  7. ATRACURIUM BESYLATE [Concomitant]
  8. 60% NITROUS OXIDE (NITROUS OXIDE) [Concomitant]
  9. ATROPINE [Concomitant]
  10. NEOSTIGMINE (NEOSTIGMINE) [Concomitant]
  11. MORPHINE [Concomitant]

REACTIONS (2)
  - BRADYCARDIA [None]
  - INFUSION RELATED REACTION [None]
